FAERS Safety Report 4642562-5 (Version None)
Quarter: 2005Q2

REPORT INFORMATION
  Report Type: 
  Country: None (occurrence: None)
  Receive Date: 20050420
  Receipt Date: 20050401
  Transmission Date: 20051028
  Serious: Yes (Hospitalization)
  Sender: FDA-Public Use
  Company Number: JP_041004849

PATIENT
  Age: 77 Year
  Sex: Male

DRUGS (7)
  1. GEMZAR [Suspect]
     Indication: PANCREATIC CARCINOMA STAGE IV
     Dosage: 1000 MG/M2 OTHER
     Dates: start: 20020710, end: 20021112
  2. RADIOTHERAPY [Concomitant]
  3. LOXONIN (LOXOPROFEN SODIUM) [Concomitant]
  4. SELBEX (TEPRENONE) [Concomitant]
  5. LENDORM [Concomitant]
  6. URSODIOL [Concomitant]
  7. PURSENNID [Concomitant]

REACTIONS (8)
  - ANAEMIA [None]
  - BILIARY TRACT INFECTION [None]
  - CONDITION AGGRAVATED [None]
  - DECREASED APPETITE [None]
  - MALIGNANT NEOPLASM PROGRESSION [None]
  - PANCREATIC CARCINOMA STAGE IV [None]
  - PLATELET COUNT DECREASED [None]
  - WHITE BLOOD CELL COUNT DECREASED [None]
